FAERS Safety Report 7385757-2 (Version None)
Quarter: 2011Q1

REPORT INFORMATION
  Report Type: 
  Country: None (occurrence: None)
  Receive Date: 20110331
  Receipt Date: 20091122
  Transmission Date: 20110831
  Serious: Yes (Other)
  Sender: FDA-Public Use
  Company Number: US-BAYER-200940709NA

PATIENT
  Sex: Female
  Weight: 88.435 kg

DRUGS (8)
  1. LANTUS [Concomitant]
  2. CELEXA [Concomitant]
  3. PREVACID [Concomitant]
  4. ASPIRIN [Concomitant]
  5. VICODIN [Concomitant]
  6. AMBIEN [Concomitant]
  7. FLAGYL [Concomitant]
  8. TRASYLOL [Suspect]
     Indication: HEART VALVE REPLACEMENT
     Dosage: INJECTION, 10,000
     Route: 042
     Dates: start: 20060824

REACTIONS (11)
  - ANXIETY [None]
  - RENAL FAILURE [None]
  - PAIN [None]
  - RENAL IMPAIRMENT [None]
  - RENAL INJURY [None]
  - FEAR [None]
  - ANHEDONIA [None]
  - EMOTIONAL DISTRESS [None]
  - STRESS [None]
  - INJURY [None]
  - UNEVALUABLE EVENT [None]
